FAERS Safety Report 21485699 (Version 1)
Quarter: 2022Q4

REPORT INFORMATION
  Report Type: Spontaneous
  Country: GB (occurrence: GB)
  Receive Date: 20221020
  Receipt Date: 20221020
  Transmission Date: 20230113
  Serious: Yes (Disabling, Other)
  Sender: FDA-Public Use
  Company Number: None

PATIENT
  Age: 41 Year
  Sex: Male
  Weight: 86 kg

DRUGS (2)
  1. RABEPRAZOLE [Suspect]
     Active Substance: RABEPRAZOLE
     Indication: Gastrooesophageal reflux disease
     Dosage: 10 MG (UNCOATED, ORAL)
     Route: 065
     Dates: start: 20220714
  2. DELSTRIGO [Concomitant]
     Active Substance: DORAVIRINE\LAMIVUDINE\TENOFOVIR DISOPROXIL FUMARATE
     Indication: HIV test
     Dosage: UNKNOWN
     Route: 065

REACTIONS (3)
  - Dyspnoea [Recovered/Resolved with Sequelae]
  - Sleep apnoea syndrome [Unknown]
  - Choking sensation [Unknown]

NARRATIVE: CASE EVENT DATE: 20220714
